FAERS Safety Report 4747921-8 (Version None)
Quarter: 2005Q3

REPORT INFORMATION
  Report Type: 
  Country: None (occurrence: None)
  Receive Date: 20050816
  Receipt Date: 20050803
  Transmission Date: 20060218
  Serious: Yes (Other)
  Sender: FDA-Public Use
  Company Number: 2005111250

PATIENT
  Age: 55 Year
  Sex: Male

DRUGS (5)
  1. METHYLPREDNISOLONE [Suspect]
     Indication: IMMUNOSUPPRESSION
  2. TACROLIMUS (TACROLIMUS) [Suspect]
     Indication: IMMUNOSUPPRESSION
  3. CELLCEPT [Concomitant]
  4. FOY (GABEXATE MESILATE) [Concomitant]
  5. ALPROSTADIL [Concomitant]

REACTIONS (5)
  - CARDIAC FAILURE [None]
  - HEPATIC ARTERY STENOSIS [None]
  - MYOCARDIAL INFARCTION [None]
  - PORTAL VEIN THROMBOSIS [None]
  - POST PROCEDURAL COMPLICATION [None]
